FAERS Safety Report 5809762-X (Version None)
Quarter: 2008Q3

REPORT INFORMATION
  Report Type: 
  Country: None (occurrence: None)
  Receive Date: 20080709
  Receipt Date: 20080621
  Transmission Date: 20090109
  Serious: Yes (Other)
  Sender: FDA-Public Use
  Company Number: STI-2008-02240

PATIENT
  Age: 15 Year
  Sex: Male

DRUGS (1)
  1. 516A (SF 194/05) DUAC AKNE GEL (CLINDAMYCIN + BENZOYL PEROXIDE) (BENZO [Suspect]
     Indication: ACNE PUSTULAR
     Dosage: (1 IN 1 DAYS)
     Dates: start: 20080408, end: 20080409

REACTIONS (3)
  - ANGIOEDEMA [None]
  - EYELID OEDEMA [None]
  - PRURITUS [None]
